FAERS Safety Report 8254722-5 (Version None)
Quarter: 2012Q1

REPORT INFORMATION
  Report Type: 
  Country: None (occurrence: None)
  Receive Date: 20120322
  Receipt Date: 20120207
  Transmission Date: 20120608
  Serious: Yes (Hospitalization)
  Sender: FDA-Public Use
  Company Number: UTC-013522

PATIENT
  Age: 62 Year
  Sex: Male
  Weight: 77.3 kg

DRUGS (2)
  1. TYVASO [Suspect]
     Indication: HEPATIC CIRRHOSIS
     Dosage: 216 MCG (54 MCG, 4 IN 1 D), INHALATION
     Route: 055
     Dates: start: 20110801
  2. REVATIO [Concomitant]

REACTIONS (1)
  - MENTAL STATUS CHANGES [None]
